FAERS Safety Report 9685111 (Version 2)
Quarter: 2014Q1

REPORT INFORMATION
  Report Type: Spontaneous
  Country: US (occurrence: US)
  Receive Date: 20131113
  Receipt Date: 20140218
  Transmission Date: 20141002
  Serious: Yes (Other)
  Sender: FDA-Public Use
  Company Number: US-AMGEN-USASP2013079410

PATIENT
  Age: 0 Day
  Sex: Female

DRUGS (5)
  1. ENBREL [Suspect]
     Indication: PRODUCT USED FOR UNKNOWN INDICATION
     Dosage: 25 MG, 2 TIMES/WK
     Route: 064
     Dates: start: 2001
  2. PREDNISONE [Concomitant]
     Dosage: 5 MG, QD
     Route: 064
     Dates: start: 200402
  3. CALCIUM + VITAMIN D3 [Concomitant]
     Dosage: 600MG/400IU, QD
     Route: 064
  4. FLU [Concomitant]
     Dosage: UNK
     Route: 064
  5. EXPECTA LIPIL [Concomitant]
     Dosage: 200 MG, QD
     Route: 064
     Dates: start: 200412, end: 201302

REACTIONS (2)
  - Neonatal respiratory distress syndrome [Recovered/Resolved]
  - Hypersomnia [Recovered/Resolved]
